FAERS Safety Report 9344169 (Version 3)
Quarter: 2013Q3

REPORT INFORMATION
  Report Type: Spontaneous
  Country: ZA (occurrence: ZA)
  Receive Date: 20130612
  Receipt Date: 20130729
  Transmission Date: 20140515
  Serious: Yes (Other)
  Sender: FDA-Public Use
  Company Number: ZA-NOVOPROD-379956

PATIENT
  Age: 19 Year
  Sex: Male
  Weight: 69 kg

DRUGS (4)
  1. NOVORAPID FLEXPEN [Suspect]
     Indication: TYPE 1 DIABETES MELLITUS
     Dosage: 36 IU, QD (12+12+12)
     Route: 058
     Dates: start: 201302
  2. NOVORAPID FLEXPEN [Suspect]
     Dosage: 36 IU, QD (10+14+12)
     Route: 058
     Dates: start: 20130627
  3. LEVEMIR FLEXPEN [Concomitant]
     Indication: TYPE 1 DIABETES MELLITUS
     Dosage: 30 IU, SINGLE
     Route: 058
     Dates: start: 201302
  4. RISPERDAL [Concomitant]
     Indication: IMPULSE-CONTROL DISORDER
     Dosage: 1.5 MG, BID (1.5+ 1.5)
     Route: 048

REACTIONS (4)
  - Intentional overdose [Recovered/Resolved]
  - Blood glucose decreased [Recovered/Resolved]
  - Blood glucose fluctuation [Unknown]
  - Hypoglycaemia [Unknown]
